FAERS Safety Report 9633701 (Version 1)
Quarter: 2013Q4

REPORT INFORMATION
  Report Type: Spontaneous
  Country: US (occurrence: US)
  Receive Date: 20131021
  Receipt Date: 20131021
  Transmission Date: 20140711
  Serious: No
  Sender: FDA-Public Use
  Company Number: US-PFIZER INC-2013300504

PATIENT
  Sex: Female

DRUGS (2)
  1. NEURONTIN [Suspect]
     Indication: MUSCULAR DYSTROPHY
     Dosage: UNK
  2. NEURONTIN [Suspect]
     Indication: MUSCLE DISORDER

REACTIONS (1)
  - Toothache [Not Recovered/Not Resolved]
